FAERS Safety Report 5245178-5 (Version None)
Quarter: 2007Q1

REPORT INFORMATION
  Report Type: 
  Country: None (occurrence: None)
  Receive Date: 20070223
  Receipt Date: 20070215
  Transmission Date: 20070707
  Serious: Yes (Other)
  Sender: FDA-Public Use
  Company Number: BR-JNJFOC-20070204050

PATIENT
  Age: 94 Year
  Sex: Female
  Weight: 65 kg

DRUGS (2)
  1. ACETAMINOPHEN W/ CODEINE [Suspect]
     Indication: PAIN
     Route: 048
  2. NAPROXEN [Concomitant]
     Indication: HEADACHE

REACTIONS (6)
  - DYSPNOEA [None]
  - EATING DISORDER [None]
  - EXPRESSIVE LANGUAGE DISORDER [None]
  - HYPOAESTHESIA ORAL [None]
  - PHARYNGEAL HYPOAESTHESIA [None]
  - SALIVARY HYPERSECRETION [None]
